FAERS Safety Report 16959627 (Version 2)
Quarter: 2020Q4

REPORT INFORMATION
  Report Type: Spontaneous
  Country: DE (occurrence: DE)
  Receive Date: 20191025
  Receipt Date: 20201218
  Transmission Date: 20210113
  Serious: Yes (Hospitalization, Other)
  Sender: FDA-Public Use
  Company Number: DE-DRREDDYS-GER/GER/19/0115325

PATIENT
  Age: 89 Year
  Sex: Female

DRUGS (15)
  1. QUETIAPINE. [Suspect]
     Active Substance: QUETIAPINE
     Indication: DEPRESSION
     Dosage: INCREASED CONTINUOUSLY
     Route: 065
  2. HALOPERIDOL. [Concomitant]
     Active Substance: HALOPERIDOL
     Indication: PRODUCT USED FOR UNKNOWN INDICATION
     Dosage: ONE DOSE
  3. CIPRAMIL (CITALOPRAM HYDROBROMIDE) [Suspect]
     Active Substance: CITALOPRAM HYDROBROMIDE
     Indication: DEPRESSION
     Dosage: UNK
  4. MEPERIDINE [Interacting]
     Active Substance: MEPERIDINE
     Indication: PAIN
     Dosage: GIVEN AT A DOSE OF 400-800 MG
     Route: 065
  5. NOVALGIN (METAMIZOLE SODIUM) [Suspect]
     Active Substance: METAMIZOLE SODIUM
     Indication: PAIN
     Dosage: 2.5-5 G; AT 2-4 ML/HOUR, 2.5-5 G OVER 24H
     Route: 042
  6. MIRTAZAPINE. [Interacting]
     Active Substance: MIRTAZAPINE
     Indication: DEPRESSION
     Route: 065
  7. MONURIL [Concomitant]
     Active Substance: FOSFOMYCIN TROMETHAMINE
     Indication: ESCHERICHIA INFECTION
     Dosage: SINGLE DOSE OF 3 G
     Route: 065
  8. DAFALGAN [Concomitant]
     Active Substance: ACETAMINOPHEN
     Indication: PAIN
     Route: 042
  9. OXYCONTIN [Interacting]
     Active Substance: OXYCODONE HYDROCHLORIDE
     Indication: PAIN
     Route: 065
  10. MAGNESIUM (UNSPECIFIED) (+) POTASSIUM (UNSPECIFIED) [Concomitant]
     Indication: HYPOKALAEMIA
  11. LORAZEPANUM [Suspect]
     Active Substance: LORAZEPAM
     Indication: DEPRESSION
     Route: 065
  12. MYDOCALM (TOLPERISONE HYDROCHLORIDE) [Interacting]
     Active Substance: TOLPERISONE HYDROCHLORIDE
     Indication: PAIN
     Route: 048
  13. CEFEPIME [Concomitant]
     Active Substance: CEFEPIME HYDROCHLORIDE
     Indication: PRODUCT USED FOR UNKNOWN INDICATION
     Dosage: GIVEN 2 TIMES AND THE DOSE WAS ADJUSTED ON KIDNEY FUNCTION
     Route: 042
  14. DUROGESIC MATRIX [Concomitant]
     Active Substance: FENTANYL
     Indication: PAIN
     Dosage: GIVEN AT A LOW DOSE
     Route: 065
  15. DIAZEPAM. [Concomitant]
     Active Substance: DIAZEPAM
     Indication: PRODUCT USED FOR UNKNOWN INDICATION
     Dosage: SEVERAL TIMES DAILY AS NEEDED
     Route: 054

REACTIONS (11)
  - Hallucination [Recovering/Resolving]
  - Drug interaction [Recovering/Resolving]
  - Respiratory alkalosis [Recovering/Resolving]
  - Drug interaction [Recovering/Resolving]
  - Diarrhoea [Recovering/Resolving]
  - Hypertension [Recovering/Resolving]
  - Fall [Recovering/Resolving]
  - Serotonin syndrome [Recovering/Resolving]
  - Delirium [Recovering/Resolving]
  - Pelvic fracture [Recovering/Resolving]
  - Fracture [Recovering/Resolving]

NARRATIVE: CASE EVENT DATE: 2015
